FAERS Safety Report 12400517 (Version 1)
Quarter: 2016Q2

REPORT INFORMATION
  Report Type: Spontaneous
  Country: US (occurrence: None)
  Receive Date: 20160524
  Receipt Date: 20160524
  Transmission Date: 20160815
  Serious: No
  Sender: FDA-Public Use
  Company Number: None

PATIENT
  Age: 37 Year
  Sex: Male
  Weight: 97.52 kg

DRUGS (2)
  1. ADDERALL [Concomitant]
     Active Substance: AMPHETAMINE ASPARTATE\AMPHETAMINE SULFATE\DEXTROAMPHETAMINE SACCHARATE\DEXTROAMPHETAMINE SULFATE
  2. AMPHETAMINE SALTS COMBO 20 MG [Suspect]
     Active Substance: AMPHETAMINE ADIPATE\DEXTROAMPHETAMINE

REACTIONS (4)
  - Drug ineffective [None]
  - Disturbance in attention [None]
  - Product tampering [None]
  - Tachyphrenia [None]

NARRATIVE: CASE EVENT DATE: 20160415
